FAERS Safety Report 4337122-X (Version None)
Quarter: 2004Q2

REPORT INFORMATION
  Report Type: 
  Country: None (occurrence: None)
  Receive Date: 20040408
  Receipt Date: 20040325
  Transmission Date: 20050107
  Serious: Yes (Death, Life-Threatening, Hospitalization)
  Sender: FDA-Public Use
  Company Number: 2003-FF-00579FF

PATIENT
  Age: 57 Year
  Sex: Female

DRUGS (6)
  1. VIRAMUNE [Suspect]
     Indication: HIV INFECTION
     Dosage: 2 IN 12 HR
     Route: 048
     Dates: start: 20030929, end: 20031103
  2. VIDEX [Concomitant]
  3. VIREAD [Concomitant]
  4. CIBLOR (CLAVULIN) [Concomitant]
  5. GLUCOPHAGE [Concomitant]
  6. DEROXAT [Concomitant]

REACTIONS (6)
  - HEPATITIS [None]
  - LUNG DISORDER [None]
  - PSEUDOMONAS INFECTION [None]
  - STAPHYLOCOCCAL SEPSIS [None]
  - STEVENS-JOHNSON SYNDROME [None]
  - TOXIC EPIDERMAL NECROLYSIS [None]
